FAERS Safety Report 25140907 (Version 1)
Quarter: 2025Q1

REPORT INFORMATION
  Report Type: Spontaneous
  Country: AU (occurrence: AU)
  Receive Date: 20250331
  Receipt Date: 20250331
  Transmission Date: 20250408
  Serious: Yes (Hospitalization)
  Sender: MYLAN
  Company Number: AU-MYLANLABS-2025M1022410

PATIENT
  Age: 50 Year
  Sex: Male

DRUGS (1)
  1. CLOZARIL [Suspect]
     Active Substance: CLOZAPINE
     Indication: Schizophrenia

REACTIONS (5)
  - Haematoma [Unknown]
  - White blood cell count decreased [Recovering/Resolving]
  - Neutrophil count decreased [Recovered/Resolved]
  - Haemoglobin decreased [Unknown]
  - Liver disorder [Unknown]

NARRATIVE: CASE EVENT DATE: 20250311
